FAERS Safety Report 9227071 (Version 2)
Quarter: 2016Q1

REPORT INFORMATION
  Report Type: Spontaneous
  Country: IT (occurrence: IT)
  Receive Date: 20130412
  Receipt Date: 20160329
  Transmission Date: 20160526
  Serious: Yes (Death)
  Sender: FDA-Public Use
  Company Number: IT-UCBSA-082711

PATIENT
  Age: 37 Year
  Sex: Male

DRUGS (5)
  1. PREGABALIN. [Suspect]
     Active Substance: PREGABALIN
     Indication: SEIZURE
     Dosage: DAILY DOSE-600 MG/DAY
  2. FOTEMUSTINE [Concomitant]
     Active Substance: FOTEMUSTINE
     Indication: SEIZURE
  3. BEVACIZUMAB [Concomitant]
     Active Substance: BEVACIZUMAB
     Indication: SEIZURE
  4. KEPPRA [Suspect]
     Active Substance: LEVETIRACETAM
     Indication: SEIZURE
     Dosage: DAILY DOSE-3000 MG
  5. CLOBAZAN [Suspect]
     Active Substance: CLOBAZAM
     Indication: SEIZURE
     Dosage: DAILY DOSE-4 MG/DAY

REACTIONS (1)
  - Neoplasm [Fatal]
